FAERS Safety Report 7366151-7 (Version None)
Quarter: 2011Q1

REPORT INFORMATION
  Report Type: 
  Country: None (occurrence: None)
  Receive Date: 20110309
  Receipt Date: 20110224
  Transmission Date: 20110831
  Serious: Yes (Hospitalization)
  Sender: FDA-Public Use
  Company Number: 026326

PATIENT
  Sex: Female

DRUGS (3)
  1. CIMZIA [Suspect]
     Indication: CROHN'S DISEASE
     Dosage: ONCE MONTHLY DOSING, SUBCUTANEOUS, 200 MG 1X/2 WEEKS, SUBCUTANEOUS
     Route: 058
     Dates: start: 20090330
  2. CIMZIA [Suspect]
     Indication: CROHN'S DISEASE
     Dosage: ONCE MONTHLY DOSING, SUBCUTANEOUS, 200 MG 1X/2 WEEKS, SUBCUTANEOUS
     Route: 058
     Dates: start: 20110222
  3. CIMZIA [Suspect]
     Route: 058
     Dates: start: 20110222

REACTIONS (6)
  - DIARRHOEA [None]
  - FALL [None]
  - MALAISE [None]
  - INJECTION SITE PAIN [None]
  - NAUSEA [None]
  - DRUG INEFFECTIVE [None]
